FAERS Safety Report 18173634 (Version 4)
Quarter: 2021Q1

REPORT INFORMATION
  Report Type: Spontaneous
  Country: DE (occurrence: DE)
  Receive Date: 20200819
  Receipt Date: 20210125
  Transmission Date: 20210419
  Serious: Yes (Hospitalization)
  Sender: FDA-Public Use
  Company Number: DE-SA-2020SA215618

PATIENT
  Age: 70 Year
  Sex: Male
  Weight: 101 kg

DRUGS (10)
  1. TAMSULOSIN HYDROCHLORIDE. [Suspect]
     Active Substance: TAMSULOSIN HYDROCHLORIDE
     Indication: PRODUCT USED FOR UNKNOWN INDICATION
     Dosage: 0.4 MG, QD (EVERY 24 HOURS)
     Route: 065
  2. CIPROFLOXACIN. [Suspect]
     Active Substance: CIPROFLOXACIN
     Indication: PRODUCT USED FOR UNKNOWN INDICATION
     Dosage: UNK UNK, BID (NK MG, 1?0?1?0)
     Route: 065
  3. METFORMIN [Concomitant]
     Active Substance: METFORMIN HYDROCHLORIDE
     Dosage: 1000 MG, BID (1000 MG, 1?0?1?0)
     Route: 065
  4. ATORVASTATIN [Concomitant]
     Active Substance: ATORVASTATIN
     Dosage: 40 MG, QD (40 MG, 0?0?1?0)
     Route: 065
  5. HYDROCHLOROTHIAZIDE. [Suspect]
     Active Substance: HYDROCHLOROTHIAZIDE
     Dosage: 12.5 MG, ONCE DAILY
     Route: 065
  6. OMEPRAZOLE. [Concomitant]
     Active Substance: OMEPRAZOLE
     Dosage: 40 MG, QD (40 MG, 1?0?0?0)
     Route: 065
  7. ACETYLSALICYLIC ACID [Concomitant]
     Active Substance: ASPIRIN
     Dosage: 100 MG, QD (100 MG, 0?1?0?0)
     Route: 065
  8. DULAGLUTIDE. [Concomitant]
     Active Substance: DULAGLUTIDE
     Dosage: 1.5 MG, QD (1.5 MG, 1?0?0?0)
     Route: 065
  9. BISOPROLOL SALT NOT SPECIFIED [Suspect]
     Active Substance: BISOPROLOL
     Indication: PRODUCT USED FOR UNKNOWN INDICATION
     Dosage: 2.5 MG, ONCE DAILY (EVERY 24 HOURS)
     Route: 065
  10. CANDESARTAN. [Suspect]
     Active Substance: CANDESARTAN
     Dosage: 16 MG, ONCE DAILY (EVERY 24 HOURS)
     Route: 065

REACTIONS (9)
  - Dysuria [Recovering/Resolving]
  - Blood pressure decreased [Unknown]
  - Product prescribing error [Unknown]
  - Pyrexia [Recovering/Resolving]
  - Constipation [Recovering/Resolving]
  - Product monitoring error [Unknown]
  - Polyuria [Recovering/Resolving]
  - Nocturia [Recovering/Resolving]
  - Labelled drug-drug interaction medication error [Unknown]
